FAERS Safety Report 10420834 (Version 1)
Quarter: 2014Q3

REPORT INFORMATION
  Report Type: Spontaneous
  Country: US (occurrence: None)
  Receive Date: 20140829
  Receipt Date: 20140829
  Transmission Date: 20150326
  Serious: Yes (Other)
  Sender: FDA-Public Use
  Company Number: None

PATIENT
  Age: 33 Year
  Sex: Female

DRUGS (1)
  1. REMICADE [Suspect]
     Active Substance: INFLIXIMAB
     Dosage: 400 MG, EVERY 6 WEEKS
     Route: 042
     Dates: start: 20140524, end: 20140708

REACTIONS (3)
  - Infusion site urticaria [None]
  - Urticaria [None]
  - Bone pain [None]

NARRATIVE: CASE EVENT DATE: 20140807
